FAERS Safety Report 5293203-8 (Version None)
Quarter: 2007Q2

REPORT INFORMATION
  Report Type: 
  Country: None (occurrence: None)
  Receive Date: 20070405
  Receipt Date: 20070320
  Transmission Date: 20071010
  Serious: Yes (Hospitalization)
  Sender: FDA-Public Use
  Company Number: DSA_29611_2007

PATIENT
  Age: 81 Year
  Sex: Male

DRUGS (7)
  1. TILDIEM RETARD [Suspect]
     Indication: DRUG USE FOR UNKNOWN INDICATION
     Dosage: 200 MG QD; PO
     Route: 048
     Dates: start: 19970901
  2. KEPPRA [Suspect]
     Indication: DRUG USE FOR UNKNOWN INDICATION
     Dosage: 250 MG BID; PO
     Route: 048
     Dates: start: 20070116, end: 20070101
  3. FUROSEMIDE [Suspect]
     Indication: DRUG USE FOR UNKNOWN INDICATION
     Dosage: 40 MG QD; PO
     Route: 048
     Dates: start: 20060531
  4. THYRAX [Concomitant]
  5. CARBASALAT CALCIUM [Concomitant]
  6. CARBAMAZEPIN RETARD [Concomitant]
  7. DIPHANTOINE Z [Concomitant]

REACTIONS (7)
  - ALANINE AMINOTRANSFERASE INCREASED [None]
  - ASPARTATE AMINOTRANSFERASE INCREASED [None]
  - DEHYDRATION [None]
  - HEPATIC FUNCTION ABNORMAL [None]
  - LIVER DISORDER [None]
  - METABOLIC ENCEPHALOPATHY [None]
  - RENAL FAILURE [None]
